FAERS Safety Report 24171647 (Version 1)
Quarter: 2024Q3

REPORT INFORMATION
  Report Type: Report from Study
  Country: CA (occurrence: CA)
  Receive Date: 20240805
  Receipt Date: 20240805
  Transmission Date: 20241016
  Serious: Yes (Hospitalization)
  Sender: SANDOZ
  Company Number: CA-SANDOZ-SDZ2023CA019934

PATIENT
  Sex: Male

DRUGS (4)
  1. ERELZI [Suspect]
     Active Substance: ETANERCEPT-SZZS
     Indication: Psoriatic arthropathy
     Dosage: 25 MG, Q2W (FORMULATION: PREFILLED PEN)
     Route: 058
     Dates: start: 20230103
  2. ERELZI [Suspect]
     Active Substance: ETANERCEPT-SZZS
     Dosage: 25 MG, Q2W, (FORMULATION: PREFILLED PEN)
     Route: 058
     Dates: start: 20230103
  3. ERELZI [Suspect]
     Active Substance: ETANERCEPT-SZZS
     Dosage: 25 MG, Q2W, (FORMULATION: PREFILLED PEN)
     Route: 058
     Dates: start: 20240509
  4. ERELZI [Suspect]
     Active Substance: ETANERCEPT-SZZS
     Indication: Rheumatoid arthritis
     Dosage: 25 MG, Q2W (FORMULATION: PREFILLED PEN)
     Route: 058
     Dates: start: 20240201

REACTIONS (2)
  - COVID-19 [Unknown]
  - Off label use [Unknown]
